FAERS Safety Report 23065865 (Version 3)
Quarter: 2023Q4

REPORT INFORMATION
  Report Type: Spontaneous
  Country: US (occurrence: US)
  Receive Date: 20231014
  Receipt Date: 20231115
  Transmission Date: 20240109
  Serious: No
  Sender: FDA-Public Use
  Company Number: US-AMGEN-USASP2023180728

PATIENT
  Age: 63 Year
  Sex: Male
  Weight: 79.9 kg

DRUGS (2)
  1. NEULASTA [Suspect]
     Active Substance: PEGFILGRASTIM
     Indication: Prophylaxis
     Dosage: 6 MILLIGRAM
     Route: 065
     Dates: start: 20230911
  2. NEULASTA [Suspect]
     Active Substance: PEGFILGRASTIM
     Indication: Neutrophil count decreased
     Dosage: 6 MILLIGRAM
     Route: 065

REACTIONS (2)
  - Accidental exposure to product [Unknown]
  - Intercepted product preparation error [Unknown]

NARRATIVE: CASE EVENT DATE: 20231006
